FAERS Safety Report 9760349 (Version 2)
Quarter: 2015Q3

REPORT INFORMATION
  Report Type: Spontaneous
  Country: US (occurrence: US)
  Receive Date: 20131216
  Receipt Date: 20150806
  Transmission Date: 20151125
  Serious: No
  Sender: FDA-Public Use
  Company Number: US-GILEAD-2010-0029408

PATIENT
  Age: 77 Year
  Sex: Male
  Weight: 99.79 kg

DRUGS (17)
  1. PREDNISONE. [Concomitant]
     Active Substance: PREDNISONE
  2. LETAIRIS [Suspect]
     Active Substance: AMBRISENTAN
     Indication: PULMONARY ARTERIAL HYPERTENSION
     Route: 048
     Dates: start: 20100504
  3. LIPITOR [Concomitant]
     Active Substance: ATORVASTATIN CALCIUM
  4. SINGULAIR [Concomitant]
     Active Substance: MONTELUKAST SODIUM
  5. ALBUTEROL. [Concomitant]
     Active Substance: ALBUTEROL
  6. ATENOLOL. [Concomitant]
     Active Substance: ATENOLOL
  7. ALDACTONE [Concomitant]
     Active Substance: SPIRONOLACTONE
  8. IRON [Concomitant]
     Active Substance: IRON
  9. LEXAPRO [Concomitant]
     Active Substance: ESCITALOPRAM OXALATE
  10. PRILOSEC [Concomitant]
     Active Substance: OMEPRAZOLE MAGNESIUM
  11. ASPIRIN. [Concomitant]
     Active Substance: ASPIRIN
  12. BUMEX [Concomitant]
     Active Substance: BUMETANIDE
  13. LASIX [Concomitant]
     Active Substance: FUROSEMIDE
  14. DIGOXIN. [Concomitant]
     Active Substance: DIGOXIN
  15. A-Z MULTIVITAMIN [Concomitant]
  16. VITAMIN C [Concomitant]
     Active Substance: ASCORBIC ACID
  17. FOSAMAX [Concomitant]
     Active Substance: ALENDRONATE SODIUM

REACTIONS (3)
  - Dyspnoea [Unknown]
  - Hypotension [Unknown]
  - Diarrhoea [Unknown]
